FAERS Safety Report 4410061-1 (Version None)
Quarter: 2004Q3

REPORT INFORMATION
  Report Type: 
  Country: None (occurrence: None)
  Receive Date: 20040728
  Receipt Date: 20040721
  Transmission Date: 20050211
  Serious: Yes (Death, Other)
  Sender: FDA-Public Use
  Company Number: PHBS2004IT09833

PATIENT
  Sex: Male

DRUGS (2)
  1. CARBAMAZEPINE [Suspect]
     Route: 065
  2. TESTOSTERONE ENANTATE [Concomitant]
     Dosage: 25 MG/MONTH
     Route: 030

REACTIONS (9)
  - CARDIAC FAILURE [None]
  - CARDIOMYOPATHY [None]
  - CONVULSION [None]
  - DEATH [None]
  - DRUG LEVEL INCREASED [None]
  - HEPATITIS [None]
  - HYDROCEPHALUS [None]
  - HYPOGLYCAEMIA [None]
  - SHUNT INFECTION [None]
